FAERS Safety Report 5236775-1 (Version None)
Quarter: 2007Q1

REPORT INFORMATION
  Report Type: 
  Country: None (occurrence: None)
  Receive Date: 20061208
  Receipt Date: 20050211
  Transmission Date: 20070707
  Serious: Yes (Other)
  Sender: FDA-Public Use
  Company Number: 2005UW02488

PATIENT
  Age: 78 Year
  Sex: Female
  Weight: 81.646 kg

DRUGS (1)
  1. CRESTOR [Suspect]
     Indication: BLOOD CHOLESTEROL INCREASED
     Dosage: 20 MG QOD PO
     Route: 048

REACTIONS (1)
  - HYPOAESTHESIA [None]
